FAERS Safety Report 4667831-4 (Version None)
Quarter: 2005Q2

REPORT INFORMATION
  Report Type: 
  Country: None (occurrence: None)
  Receive Date: 20050520
  Receipt Date: 20040921
  Transmission Date: 20051028
  Serious: Yes (Hospitalization)
  Sender: FDA-Public Use
  Company Number: PL-SANOFI-SYNTHELABO-D01200403765

PATIENT
  Sex: Male
  Weight: 80 kg

DRUGS (8)
  1. SR57746 [Suspect]
     Route: 048
     Dates: start: 20040212, end: 20040908
  2. OXALIPLATIN [Suspect]
     Route: 042
     Dates: start: 20040826, end: 20040826
  3. FLUOROURACIL [Suspect]
     Dosage: 400 MG/M2 AS IV BOLUS THEN 600 MG/M2 AS 22 HOURS CONTINUOUS INFUSION D1-D2 Q2W
     Route: 042
     Dates: start: 20040826, end: 20040828
  4. LEUCOVORIN CALCIUM [Suspect]
     Dosage: 200 MG/M2 AS 2 HOURS INFUSION ON D1-D2 Q2W
     Route: 042
     Dates: start: 20040826, end: 20040828
  5. MIDAZOLAM [Concomitant]
     Dosage: UNK
     Route: 065
     Dates: start: 20040810, end: 20040810
  6. TEMAZEPAM [Concomitant]
     Dosage: UNK
     Route: 065
     Dates: start: 20040812, end: 20040812
  7. CEFUROXIM [Concomitant]
     Dosage: UNK
     Route: 065
     Dates: start: 20040810, end: 20040813
  8. PROMETHAZINE [Concomitant]
     Dosage: UNK
     Route: 065
     Dates: start: 20040912

REACTIONS (9)
  - ABDOMINAL PAIN [None]
  - ASTHENIA [None]
  - DEHYDRATION [None]
  - DIABETES MELLITUS [None]
  - DISEASE PROGRESSION [None]
  - LYMPHADENOPATHY [None]
  - METASTASES TO LIVER [None]
  - METASTASES TO LUNG [None]
  - VOMITING [None]
